FAERS Safety Report 17005329 (Version 1)
Quarter: 2019Q4

REPORT INFORMATION
  Report Type: Spontaneous
  Country: US (occurrence: US)
  Receive Date: 20190926
  Receipt Date: 20190926
  Transmission Date: 20200122
  Serious: No
  Sender: FDA-Public Use
  Company Number: None

PATIENT
  Sex: Male

DRUGS (1)
  1. HUMIRA [Suspect]
     Active Substance: ADALIMUMAB
     Indication: COLITIS ULCERATIVE
     Route: 058
     Dates: start: 20190604

REACTIONS (9)
  - Constipation [None]
  - Anxiety [None]
  - Injection site erythema [None]
  - Radiation injury [None]
  - Abdominal pain upper [None]
  - Insomnia [None]
  - Fatigue [None]
  - Psoriasis [None]
  - Rectal haemorrhage [None]
